FAERS Safety Report 19697016 (Version 1)
Quarter: 2021Q3

REPORT INFORMATION
  Report Type: Spontaneous
  Country: US (occurrence: US)
  Receive Date: 20210813
  Receipt Date: 20210813
  Transmission Date: 20211014
  Serious: Yes (Hospitalization)
  Sender: FDA-Public Use
  Company Number: None

PATIENT
  Sex: Female

DRUGS (5)
  1. NSAIDS [Concomitant]
     Active Substance: UNSPECIFIED INGREDIENT
  2. SULFONAMIDE [Concomitant]
     Active Substance: UNSPECIFIED INGREDIENT
  3. SULFA ANTIBIOTICS [Concomitant]
     Active Substance: UNSPECIFIED INGREDIENT
  4. CAPECITABINE 500 MG TAB [Suspect]
     Active Substance: CAPECITABINE
     Indication: COLON CANCER
     Route: 048
     Dates: start: 20210721
  5. SALIACYLATES [Concomitant]

REACTIONS (1)
  - Adverse drug reaction [None]
